FAERS Safety Report 7831676-4 (Version None)
Quarter: 2011Q4

REPORT INFORMATION
  Report Type: 
  Country: None (occurrence: None)
  Receive Date: 20111021
  Receipt Date: 20111009
  Transmission Date: 20120403
  Serious: Yes (Other)
  Sender: FDA-Public Use
  Company Number: PHHY2011CZ89135

PATIENT
  Sex: Female

DRUGS (2)
  1. GLEEVEC [Suspect]
     Indication: METASTASES TO PERITONEUM
  2. GLEEVEC [Suspect]
     Indication: METASTASES TO SOFT TISSUE
     Dosage: 300 MG,
     Dates: start: 20050414, end: 20050428

REACTIONS (2)
  - HYPERCREATINAEMIA [None]
  - NEPHROPATHY TOXIC [None]
